FAERS Safety Report 14736514 (Version 1)
Quarter: 2018Q2

REPORT INFORMATION
  Report Type: Spontaneous
  Country: US (occurrence: US)
  Receive Date: 20180403
  Receipt Date: 20180403
  Transmission Date: 20180711
  Serious: Yes (Hospitalization)
  Sender: FDA-Public Use
  Company Number: None

PATIENT
  Age: 19 Year
  Sex: Male

DRUGS (1)
  1. TRACLEER [Suspect]
     Active Substance: BOSENTAN
     Indication: PULMONARY ARTERIAL HYPERTENSION
     Route: 048
     Dates: start: 20141203

REACTIONS (5)
  - Catheter site extravasation [None]
  - Staphylococcal bacteraemia [None]
  - Soft tissue infection [None]
  - Device related infection [None]
  - Sepsis [None]

NARRATIVE: CASE EVENT DATE: 20180305
